FAERS Safety Report 5447035-8 (Version None)
Quarter: 2007Q3

REPORT INFORMATION
  Report Type: 
  Country: None (occurrence: None)
  Receive Date: 20070803
  Receipt Date: 20060801
  Transmission Date: 20080115
  Serious: Yes (Hospitalization)
  Sender: FDA-Public Use
  Company Number: SU-2006-005232

PATIENT
  Sex: Female
  Weight: 113.3993 kg

DRUGS (6)
  1. BENICAR HCT [Suspect]
     Indication: HYPERTENSION
     Dosage: 20.125 MG (20.125 MG, ONCE A DAY) PER ORAL
     Route: 048
  2. LOPRESSOR (METOPROLO TARTRATE) (50 MILLIGRAM, TABLET) (METOPROLOL TART [Concomitant]
  3. CARDIZEM CD (DILTIAZEM HYDROCHLORIDE) (240 MILLIGRAM, CAPSULE) (DILTIA [Concomitant]
  4. K-DUR (POTASSIUM CHLORIDE) (20 MILLIEQUIVALENTS, TABLET) (POTASSIUM CH [Concomitant]
  5. DEPO PROVERA (MEDROXYPROGESTERONE ACETATE) (150 MILLIGRAM, INJECTION) [Concomitant]
  6. OMEPRAZOLE (OMEPRAZOLE) (20 MILLIGRAM CAPSULE) (OMEPRAZOLE) [Concomitant]

REACTIONS (1)
  - TACHYCARDIA [None]
